FAERS Safety Report 17247429 (Version 3)
Quarter: 2020Q2

REPORT INFORMATION
  Report Type: Spontaneous
  Country: US (occurrence: US)
  Receive Date: 20200108
  Receipt Date: 20200508
  Transmission Date: 20200713
  Serious: Yes (Hospitalization, Other)
  Sender: FDA-Public Use
  Company Number: US-009507513-2001USA001333

PATIENT
  Age: 72 Year
  Sex: Male

DRUGS (12)
  1. ASPIRIN. [Concomitant]
     Active Substance: ASPIRIN
     Dosage: UNK
  2. CALCIUM (UNSPECIFIED) [Concomitant]
     Active Substance: CALCIUM
     Dosage: UNK
  3. TICE BCG [Suspect]
     Active Substance: BACILLUS CALMETTE-GUERIN SUBSTRAIN TICE LIVE ANTIGEN
     Indication: BLADDER CANCER STAGE I, WITH CANCER IN SITU
     Dosage: UNK
     Dates: start: 20170307, end: 20181102
  4. MITOMYCIN. [Suspect]
     Active Substance: MITOMYCIN
     Dosage: UNK
  5. VITAMIN D (UNSPECIFIED) [Concomitant]
     Active Substance: VITAMIN D NOS
     Dosage: UNK
  6. MAGNESIUM (UNSPECIFIED) [Concomitant]
     Active Substance: MAGNESIUM
     Dosage: UNK
  7. TICE BCG [Suspect]
     Active Substance: BACILLUS CALMETTE-GUERIN SUBSTRAIN TICE LIVE ANTIGEN
     Dosage: 1/3 DOSE
     Dates: start: 201911
  8. GLUTAMINE [Concomitant]
     Active Substance: GLUTAMINE
     Dosage: UNK
  9. GEMCITABINE. [Suspect]
     Active Substance: GEMCITABINE
     Dosage: UNK
  10. OMEGA-3 MARINE TRIGLYCERIDES [Concomitant]
     Active Substance: FISH OIL
     Dosage: UNK
  11. BERBERINE [Concomitant]
     Active Substance: BERBERINE
     Dosage: UNK
  12. ARTICHOKE. [Concomitant]
     Active Substance: ARTICHOKE
     Dosage: UNK

REACTIONS (4)
  - Bladder cancer recurrent [Unknown]
  - Product availability issue [Unknown]
  - Drug ineffective [Unknown]
  - Adverse event [Unknown]

NARRATIVE: CASE EVENT DATE: 20181102
